FAERS Safety Report 19067073 (Version 2)
Quarter: 2021Q2

REPORT INFORMATION
  Report Type: Spontaneous
  Country: US (occurrence: US)
  Receive Date: 20210329
  Receipt Date: 20210421
  Transmission Date: 20210717
  Serious: Yes (Other)
  Sender: FDA-Public Use
  Company Number: US-ROCHE-2796726

PATIENT
  Sex: Female
  Weight: 56 kg

DRUGS (2)
  1. ACTEMRA [Suspect]
     Active Substance: TOCILIZUMAB
     Indication: CYTOKINE STORM
  2. ACTEMRA [Suspect]
     Active Substance: TOCILIZUMAB
     Indication: COVID-19 PNEUMONIA
     Route: 042

REACTIONS (25)
  - Hepatic pain [Unknown]
  - Insomnia [Unknown]
  - Chromaturia [Unknown]
  - Alopecia [Unknown]
  - Liver tenderness [Unknown]
  - Herpes simplex reactivation [Unknown]
  - Cough [Unknown]
  - Off label use [Unknown]
  - Balance disorder [Unknown]
  - Discomfort [Unknown]
  - Oedema peripheral [Unknown]
  - Abdominal distension [Unknown]
  - Leukopenia [Unknown]
  - Vasodilatation [Unknown]
  - Neutropenia [Unknown]
  - Night sweats [Unknown]
  - Aphonia [Unknown]
  - Swelling [Unknown]
  - Confusional state [Unknown]
  - Vision blurred [Unknown]
  - Erythema [Unknown]
  - Dyspnoea [Unknown]
  - Diarrhoea [Unknown]
  - Ageusia [Unknown]
  - Nasal congestion [Unknown]
